FAERS Safety Report 7603631-0 (Version None)
Quarter: 2011Q3

REPORT INFORMATION
  Report Type: 
  Country: None (occurrence: None)
  Receive Date: 20110712
  Receipt Date: 20110706
  Transmission Date: 20111222
  Serious: No
  Sender: FDA-Public Use
  Company Number: US-PFIZER INC-2011152755

PATIENT

DRUGS (2)
  1. DRONEDARONE HCL [Suspect]
     Dosage: UNK
  2. AMIODARONE HCL [Suspect]
     Dosage: UNK

REACTIONS (2)
  - OEDEMA PERIPHERAL [None]
  - PULMONARY FUNCTION TEST ABNORMAL [None]
